FAERS Safety Report 9311996 (Version 1)
Quarter: 2013Q2

REPORT INFORMATION
  Report Type: Spontaneous
  Country: US (occurrence: US)
  Receive Date: 20130528
  Receipt Date: 20130528
  Transmission Date: 20140414
  Serious: Yes (Hospitalization)
  Sender: FDA-Public Use
  Company Number: US-JNJFOC-20130508266

PATIENT
  Age: 52 Year
  Sex: Female
  Weight: 47.63 kg

DRUGS (1)
  1. TERAZOL [Suspect]
     Indication: VAGINAL DISCHARGE
     Route: 067
     Dates: start: 20130507, end: 20130509

REACTIONS (5)
  - Influenza like illness [Recovered/Resolved]
  - Vomiting [Recovered/Resolved]
  - Body temperature increased [Recovered/Resolved]
  - White blood cell count increased [Recovered/Resolved]
  - White blood cells urine [Recovered/Resolved]
